FAERS Safety Report 10648098 (Version 2)
Quarter: 2015Q2

REPORT INFORMATION
  Report Type: Report from Study
  Country: SE (occurrence: SE)
  Receive Date: 20141212
  Receipt Date: 20150415
  Transmission Date: 20150821
  Serious: Yes (Life-Threatening, Other)
  Sender: FDA-Public Use
  Company Number: SE-AMGEN-SWENI2014096259

PATIENT
  Age: 72 Year
  Sex: Male

DRUGS (1)
  1. ETANERCEPT [Suspect]
     Active Substance: ETANERCEPT
     Indication: RHEUMATOID ARTHRITIS
     Dosage: 25 MG, UNK
     Route: 065
     Dates: start: 20040101

REACTIONS (1)
  - Malignant neoplasm of renal pelvis [Unknown]

NARRATIVE: CASE EVENT DATE: 20130610
